FAERS Safety Report 4881429-4 (Version None)
Quarter: 2005Q4

REPORT INFORMATION
  Report Type: 
  Country: None (occurrence: None)
  Receive Date: 20051209
  Receipt Date: 20050607
  Transmission Date: 20060501
  Serious: Yes (Other)
  Sender: FDA-Public Use
  Company Number: USA-2005-0020540

PATIENT
  Age: 23 Year
  Sex: Male

DRUGS (2)
  1. OXYCONTIN TALBETS (OXYCODONE HYDROCHLORIDE) [Suspect]
     Route: 065
  2. MARIJUANA (CANNABIS) [Suspect]
     Route: 065

REACTIONS (2)
  - EUPHORIC MOOD [None]
  - POLYSUBSTANCE ABUSE [None]
